FAERS Safety Report 5211794-X (Version None)
Quarter: 2007Q1

REPORT INFORMATION
  Report Type: 
  Country: None (occurrence: None)
  Receive Date: 20070118
  Receipt Date: 20070110
  Transmission Date: 20070707
  Serious: Yes (Other)
  Sender: FDA-Public Use
  Company Number: RO-ROCHE-477747

PATIENT
  Sex: Female

DRUGS (1)
  1. BONIVA [Suspect]
     Indication: OSTEOPOROSIS
     Dosage: FILMCOATED TABLETS
     Route: 048
     Dates: start: 20061225, end: 20061225

REACTIONS (2)
  - PARAESTHESIA [None]
  - PARESIS [None]
